FAERS Safety Report 4465984-4 (Version None)
Quarter: 2004Q3

REPORT INFORMATION
  Report Type: 
  Country: None (occurrence: None)
  Receive Date: 20040930
  Receipt Date: 20040916
  Transmission Date: 20050211
  Serious: Yes (Other)
  Sender: FDA-Public Use
  Company Number: 204666

PATIENT
  Age: 43 Year
  Sex: Male

DRUGS (1)
  1. AVONEX [Suspect]
     Indication: MULTIPLE SCLEROSIS
     Dates: start: 20010515, end: 20040701

REACTIONS (7)
  - ARTHRITIS [None]
  - BLOOD IMMUNOGLOBULIN A INCREASED [None]
  - C-REACTIVE PROTEIN INCREASED [None]
  - COMPLEMENT FACTOR C3 INCREASED [None]
  - EXANTHEM [None]
  - HYPERSENSITIVITY [None]
  - PRURITUS [None]
